FAERS Safety Report 8940511 (Version 1)
Quarter: 2012Q4

REPORT INFORMATION
  Report Type: 
  Country: US (occurrence: US)
  Receive Date: 20121203
  Receipt Date: 20121203
  Transmission Date: 20130627
  Serious: Yes (Other)
  Sender: FDA-Public Use
  Company Number: US-BAYER-2012-125882

PATIENT

DRUGS (1)
  1. ALKA-SELTZER PLUS COLD [Suspect]

REACTIONS (2)
  - Syncope [None]
  - Insomnia [None]
